FAERS Safety Report 25443685 (Version 1)
Quarter: 2025Q2

REPORT INFORMATION
  Report Type: Spontaneous
  Country: US (occurrence: US)
  Receive Date: 20250617
  Receipt Date: 20250617
  Transmission Date: 20250717
  Serious: Yes (Hospitalization)
  Sender: AMGEN
  Company Number: US-AMGEN-USASP2025114945

PATIENT
  Age: 78 Year
  Sex: Female

DRUGS (1)
  1. MVASI [Suspect]
     Active Substance: BEVACIZUMAB-AWWB
     Indication: Hepatocellular carcinoma
     Route: 042

REACTIONS (2)
  - Stress cardiomyopathy [Unknown]
  - Off label use [Unknown]

NARRATIVE: CASE EVENT DATE: 20250603
